FAERS Safety Report 10192262 (Version 1)
Quarter: 2014Q2

REPORT INFORMATION
  Report Type: Spontaneous
  Country: IT (occurrence: None)
  Receive Date: 20140521
  Receipt Date: 20140521
  Transmission Date: 20141212
  Serious: Yes (Hospitalization)
  Sender: FDA-Public Use
  Company Number: FK201401785

PATIENT
  Age: 54 Year
  Sex: Male

DRUGS (2)
  1. CYTARABINE INJECTION [Suspect]
     Indication: ACUTE MYELOID LEUKAEMIA
     Dosage: 20700MG, TOTAL, INTRAVENOUS (NOT OTHERWISE SPECIFIED)
     Route: 042
     Dates: start: 20140312, end: 20140315
  2. ZAVEDOS [Concomitant]

REACTIONS (1)
  - Dyskinesia [None]
